FAERS Safety Report 6733376-0 (Version None)
Quarter: 2010Q2

REPORT INFORMATION
  Report Type: 
  Country: None (occurrence: None)
  Receive Date: 20100520
  Receipt Date: 20100512
  Transmission Date: 20101027
  Serious: Yes (Other)
  Sender: FDA-Public Use
  Company Number: US-JNJFOC-20100506813

PATIENT
  Age: 34 Year
  Sex: Male

DRUGS (5)
  1. HALDOL [Suspect]
     Indication: SCHIZOPHRENIA
     Route: 065
  2. LITHIUM [Concomitant]
     Route: 065
  3. ARTANE [Concomitant]
     Route: 065
  4. ELAVIL [Concomitant]
     Route: 065
  5. INDERAL [Concomitant]
     Route: 065

REACTIONS (2)
  - OVERDOSE [None]
  - SELF INJURIOUS BEHAVIOUR [None]
